FAERS Safety Report 4592084-5 (Version None)
Quarter: 2005Q1

REPORT INFORMATION
  Report Type: 
  Country: None (occurrence: None)
  Receive Date: 20050125
  Receipt Date: 20041101
  Transmission Date: 20050727
  Serious: No
  Sender: FDA-Public Use
  Company Number: USA040773646

PATIENT
  Age: 80 Year
  Sex: Female

DRUGS (10)
  1. FORTEO [Suspect]
     Indication: OSTEOPOROSIS
     Dates: start: 20040723
  2. PROPOXYPHENE NAPSYLATE W/ ACETAMINOPHEN [Concomitant]
  3. TOPROL-XL [Concomitant]
  4. SYNTHROID [Concomitant]
  5. MONOPRIL [Concomitant]
  6. MULTI-VITAMIN [Concomitant]
  7. VITAMIN C [Concomitant]
  8. VITAMIN D [Concomitant]
  9. MAGNESIUM [Concomitant]
  10. CALCIUM GLUCONATE [Concomitant]

REACTIONS (7)
  - ARTHRALGIA [None]
  - ASTHENIA [None]
  - BONE PAIN [None]
  - FATIGUE [None]
  - FEELING ABNORMAL [None]
  - PAIN IN EXTREMITY [None]
  - SOMNOLENCE [None]
